FAERS Safety Report 5097009-4 (Version None)
Quarter: 2006Q3

REPORT INFORMATION
  Report Type: 
  Country: None (occurrence: None)
  Receive Date: 20060906
  Receipt Date: 20060825
  Transmission Date: 20061208
  Serious: Yes (Other)
  Sender: FDA-Public Use
  Company Number: PHBS2006BR13133

PATIENT
  Age: 33 Year
  Sex: Male
  Weight: 52 kg

DRUGS (5)
  1. TEGRETOL [Suspect]
     Indication: EPILEPSY
     Dosage: 400 MG, Q12H
     Route: 048
     Dates: start: 20050501
  2. TEGRETOL [Suspect]
     Indication: EPILEPSY
     Dosage: 400 MG, Q12H
     Route: 048
  3. HALIDOL [Concomitant]
     Indication: DEPRESSION
     Dosage: 5 MG/DAY
     Route: 048
     Dates: start: 20050101
  4. AKINETON [Concomitant]
     Dosage: 4 MG/DAY
     Route: 048
     Dates: start: 20050101
  5. RIVOTRIL [Concomitant]
     Indication: HEADACHE
     Dosage: 4 MG/DAY
     Dates: start: 20050101

REACTIONS (12)
  - ANOREXIA [None]
  - FEELING ABNORMAL [None]
  - FEELING HOT [None]
  - HEAD DISCOMFORT [None]
  - HEADACHE [None]
  - MALAISE [None]
  - MITRAL VALVE DISEASE [None]
  - RESTLESSNESS [None]
  - RETCHING [None]
  - SENSATION OF HEAVINESS [None]
  - VOMITING [None]
  - WEIGHT DECREASED [None]
